FAERS Safety Report 7632502-9 (Version None)
Quarter: 2011Q3

REPORT INFORMATION
  Report Type: 
  Country: None (occurrence: None)
  Receive Date: 20110725
  Receipt Date: 20101018
  Transmission Date: 20111222
  Serious: No
  Sender: FDA-Public Use
  Company Number: US-BRISTOL-MYERS SQUIBB COMPANY-15299696

PATIENT
  Age: 59 Year
  Sex: Male
  Weight: 95 kg

DRUGS (8)
  1. NORVASC [Concomitant]
  2. ZEBETA [Concomitant]
  3. PRAVACHOL [Concomitant]
  4. PROZAC [Concomitant]
     Indication: DEPRESSION
  5. KLOR-CON [Concomitant]
  6. HYDROCHLOROTHIAZIDE [Concomitant]
  7. AMIODARONE HCL [Concomitant]
  8. COUMADIN [Suspect]
     Dates: start: 20100101

REACTIONS (2)
  - INTERNATIONAL NORMALISED RATIO FLUCTUATION [None]
  - DRUG INEFFECTIVE [None]
